FAERS Safety Report 9225540 (Version 1)
Quarter: 2013Q2

REPORT INFORMATION
  Report Type: Spontaneous
  Country: FR (occurrence: FR)
  Receive Date: 20130411
  Receipt Date: 20130411
  Transmission Date: 20140414
  Serious: Yes (Hospitalization)
  Sender: FDA-Public Use
  Company Number: FR-ROCHE-1212094

PATIENT
  Age: 88 Year
  Sex: Female

DRUGS (5)
  1. ROCEPHINE [Suspect]
     Indication: PYELONEPHRITIS ACUTE
     Route: 042
     Dates: start: 20130210, end: 20130216
  2. GENTAMICINE [Suspect]
     Indication: PYELONEPHRITIS ACUTE
     Route: 042
     Dates: start: 20130210, end: 20130210
  3. COUMADIN [Concomitant]
     Route: 048
  4. HEPARIN CALCIUM [Concomitant]
     Route: 058
  5. ACUPAN [Concomitant]
     Dosage: 1 AMPOULE 3/1DAY
     Route: 065

REACTIONS (2)
  - Cholestasis [Not Recovered/Not Resolved]
  - Hepatocellular injury [Not Recovered/Not Resolved]
